FAERS Safety Report 6924841-1 (Version None)
Quarter: 2010Q3

REPORT INFORMATION
  Report Type: 
  Country: None (occurrence: None)
  Receive Date: 20100816
  Receipt Date: 20100802
  Transmission Date: 20110219
  Serious: Yes (Other)
  Sender: FDA-Public Use
  Company Number: IL-RANBAXY-2010RR-37094

PATIENT
  Age: 14 Year
  Sex: Male

DRUGS (1)
  1. ISOTRETINOIN [Suspect]
     Dosage: UNK
     Route: 048

REACTIONS (3)
  - CONJUNCTIVAL DISORDER [None]
  - PUNCTATE KERATITIS [None]
  - ULCERATIVE KERATITIS [None]
